FAERS Safety Report 5317772-4 (Version None)
Quarter: 2007Q2

REPORT INFORMATION
  Report Type: 
  Country: None (occurrence: None)
  Receive Date: 20070507
  Receipt Date: 20070503
  Transmission Date: 20071010
  Serious: Yes (Other)
  Sender: FDA-Public Use
  Company Number: HQWYE968603MAY07

PATIENT
  Sex: Male

DRUGS (2)
  1. CORDARONE [Suspect]
     Dosage: UNSPECIFIED DOSE AND REGIMEN
     Route: 048
  2. GLIMEPIRIDE [Concomitant]
     Indication: DIABETES MELLITUS NON-INSULIN-DEPENDENT
     Dosage: 3X1 TABLET
     Route: 048

REACTIONS (1)
  - HYPOGLYCAEMIA [None]
